FAERS Safety Report 7371081-0 (Version None)
Quarter: 2011Q1

REPORT INFORMATION
  Report Type: 
  Country: None (occurrence: None)
  Receive Date: 20110324
  Receipt Date: 20110302
  Transmission Date: 20110831
  Serious: Yes (Death, Other)
  Sender: FDA-Public Use
  Company Number: US-BAYER-200940303NA

PATIENT
  Sex: Male
  Weight: 105.67 kg

DRUGS (6)
  1. LISINOPRIL [Concomitant]
     Dosage: UNK
     Dates: start: 20011223, end: 20011224
  2. ACETAMINOPHEN [Concomitant]
     Dosage: UNK
     Dates: start: 20010713, end: 20010714
  3. ATENOLOL [Concomitant]
     Dosage: UNK
     Dates: start: 20011223, end: 20021224
  4. ACETYLSALICYLIC ACID SRT [Concomitant]
     Dosage: UNK
     Dates: start: 20010707, end: 20020708
  5. METOPROLOL [Concomitant]
     Dosage: UNK
     Dates: start: 20021219, end: 20021220
  6. TRASYLOL [Suspect]
     Indication: PRODUCT USED FOR UNKNOWN INDICATION
     Route: 042
     Dates: start: 20020314

REACTIONS (13)
  - EMOTIONAL DISTRESS [None]
  - UNEVALUABLE EVENT [None]
  - MULTI-ORGAN FAILURE [None]
  - STRESS [None]
  - FEAR [None]
  - PAIN [None]
  - INJURY [None]
  - RENAL INJURY [None]
  - RENAL FAILURE [None]
  - ANXIETY [None]
  - ANHEDONIA [None]
  - RENAL IMPAIRMENT [None]
  - DEATH [None]
